FAERS Safety Report 9066253 (Version 1)
Quarter: 2013Q1

REPORT INFORMATION
  Report Type: Spontaneous
  Country: IT (occurrence: IT)
  Receive Date: 20130214
  Receipt Date: 20130214
  Transmission Date: 20140127
  Serious: Yes (Other)
  Sender: FDA-Public Use
  Company Number: IT-TEVA-385925ISR

PATIENT
  Age: 58 None
  Sex: Male

DRUGS (1)
  1. CISPLATINO TEVA ITALIA [Suspect]
     Indication: HEPATOBILIARY CANCER
     Dosage: 135 MILLIGRAM DAILY;
     Route: 042
     Dates: start: 20130125, end: 20130125

REACTIONS (2)
  - Dyspnoea [Recovered/Resolved]
  - Flushing [Recovered/Resolved]
